FAERS Safety Report 4344377-4 (Version None)
Quarter: 2004Q2

REPORT INFORMATION
  Report Type: 
  Country: None (occurrence: None)
  Receive Date: 20040419
  Receipt Date: 20040407
  Transmission Date: 20050107
  Serious: Yes (Disabling)
  Sender: FDA-Public Use
  Company Number: GBWYE699413APR04

PATIENT
  Age: 56 Year
  Sex: Male

DRUGS (22)
  1. EFFEXOR XR [Suspect]
     Indication: DEPRESSION
     Dosage: 75 MG 1X PER 1 DAY
     Route: 048
     Dates: start: 20040303, end: 20040309
  2. SIMVASTATIN [Concomitant]
  3. CITALOPRAM HYDROBROMIDE (CITALOPRAM HYDROBROMIDE) [Concomitant]
  4. ORLISTAT (ORLISTAT) [Concomitant]
  5. TEMAZEPAM [Concomitant]
  6. DEPO-MEDROL [Concomitant]
  7. NICORANDIL (NICORANDIL) [Concomitant]
  8. MORPHINE SULFATE [Concomitant]
  9. BETAHISTINE HYDROCHLORIDE (BETAHISTINE HYDROCHLORIDE) [Concomitant]
  10. FINASTERIDE [Concomitant]
  11. GABAPENTIN [Concomitant]
  12. ASPIRIN [Concomitant]
  13. DOMPERIDONE (DOMPERIDONE) [Concomitant]
  14. POLYTAR (COAL TAR) [Concomitant]
  15. RAMIPRIL [Concomitant]
  16. OMEPRAZOLE [Concomitant]
  17. ISOSORBIDE MONONITRATE [Concomitant]
  18. CELECOXIB (CELECOXIB) [Concomitant]
  19. ALBUTEROL SULFATE [Concomitant]
  20. ATENOLOL [Concomitant]
  21. GLYCERYL TRINTIRATE (GLYCERYL TRINTIRATE) [Concomitant]
  22. DIHYDROCODEINE (DIHYDROCODEINE) [Concomitant]

REACTIONS (6)
  - ARTHRALGIA [None]
  - GASTROINTESTINAL INFECTION [None]
  - HAEMATURIA [None]
  - JOINT SWELLING [None]
  - MYALGIA [None]
  - URINARY RETENTION [None]
